FAERS Safety Report 13079878 (Version 3)
Quarter: 2017Q3

REPORT INFORMATION
  Report Type: Spontaneous
  Country: CH (occurrence: CH)
  Receive Date: 20170103
  Receipt Date: 20170711
  Transmission Date: 20171127
  Serious: Yes (Other)
  Sender: FDA-Public Use
  Company Number: CH-AMGEN-CHESP2016172175

PATIENT
  Age: 18 Year
  Sex: Male

DRUGS (2)
  1. ENBREL [Suspect]
     Active Substance: ETANERCEPT
     Indication: JUVENILE IDIOPATHIC ARTHRITIS
     Dosage: 50 MG, 1X/ WEEKLY
     Route: 058
     Dates: start: 20120723
  2. ENBREL [Suspect]
     Active Substance: ETANERCEPT
     Dosage: 50 MG, EVERY TWO WEEKS
     Route: 058

REACTIONS (2)
  - Ejection fraction decreased [Not Recovered/Not Resolved]
  - Left ventricular dilatation [Not Recovered/Not Resolved]

NARRATIVE: CASE EVENT DATE: 20151016
